FAERS Safety Report 19088070 (Version 1)
Quarter: 2021Q2

REPORT INFORMATION
  Report Type: Spontaneous
  Country: US (occurrence: US)
  Receive Date: 20210402
  Receipt Date: 20210402
  Transmission Date: 20210717
  Serious: Yes (Hospitalization, Disabling)
  Sender: FDA-Public Use
  Company Number: None

PATIENT
  Age: 88 Year
  Sex: Male
  Weight: 102.51 kg

DRUGS (13)
  1. METFORMIN [Concomitant]
     Active Substance: METFORMIN HYDROCHLORIDE
  2. VITAMIN B12 [Concomitant]
     Active Substance: CYANOCOBALAMIN
  3. FISH OIL [Concomitant]
     Active Substance: FISH OIL
  4. TRESIBA [Concomitant]
     Active Substance: INSULIN DEGLUDEC
  5. GLIPZIDE [Concomitant]
     Active Substance: GLIPIZIDE
  6. ASPRIN [Concomitant]
     Active Substance: ASPIRIN
  7. VITAMIN D3 [Concomitant]
     Active Substance: CHOLECALCIFEROL
  8. TRIPTORELIN [Concomitant]
     Active Substance: TRIPTORELIN
  9. ZYTIGA [Suspect]
     Active Substance: ABIRATERONE ACETATE
     Indication: PROSTATE CANCER
     Dosage: ?          QUANTITY:250 MG MILLIGRAM(S);?
     Route: 048
     Dates: start: 20190915, end: 20191223
  10. LIPITOR [Concomitant]
     Active Substance: ATORVASTATIN CALCIUM
  11. MULTI VITAMIN [Concomitant]
     Active Substance: VITAMINS
  12. ACETAMINOPHEN. [Concomitant]
     Active Substance: ACETAMINOPHEN
  13. CITRACAL [Concomitant]
     Active Substance: CALCIUM CITRATE

REACTIONS (4)
  - Interstitial lung disease [None]
  - Loss of consciousness [None]
  - Dyspnoea [None]
  - Pulmonary toxicity [None]

NARRATIVE: CASE EVENT DATE: 20190929
